FAERS Safety Report 16097189 (Version 1)
Quarter: 2019Q1

REPORT INFORMATION
  Report Type: Report from Study
  Country: JP (occurrence: JP)
  Receive Date: 20190320
  Receipt Date: 20190320
  Transmission Date: 20190418
  Serious: Yes (Death)
  Sender: FDA-Public Use
  Company Number: PHHY2013JP167182

PATIENT
  Age: 58 Year
  Sex: Female
  Weight: 45 kg

DRUGS (5)
  1. VOTRIENT [Suspect]
     Active Substance: PAZOPANIB HYDROCHLORIDE
     Indication: ENDOMETRIAL STROMAL SARCOMA
     Dosage: 800 MG, QD
     Route: 048
     Dates: start: 20130216, end: 20130312
  2. TAMIFLU [Concomitant]
     Active Substance: OSELTAMIVIR PHOSPHATE
     Indication: PRODUCT USED FOR UNKNOWN INDICATION
     Route: 048
  3. XYZAL [Concomitant]
     Active Substance: LEVOCETIRIZINE DIHYDROCHLORIDE
     Indication: PRODUCT USED FOR UNKNOWN INDICATION
     Route: 048
  4. LOXOPROFEN [Concomitant]
     Active Substance: LOXOPROFEN
     Indication: ENDOMETRIAL STROMAL SARCOMA
     Dosage: UNK
     Route: 048
  5. VOTRIENT [Suspect]
     Active Substance: PAZOPANIB HYDROCHLORIDE
     Dosage: 800 MG, QD
     Route: 048
     Dates: start: 20130326, end: 20130422

REACTIONS (11)
  - Hypertension [Recovered/Resolved]
  - Alanine aminotransferase increased [Recovering/Resolving]
  - Decreased appetite [Recovering/Resolving]
  - Nausea [Recovered/Resolved]
  - Endometrial stromal sarcoma [Fatal]
  - Malignant neoplasm progression [Fatal]
  - Aspartate aminotransferase increased [Recovering/Resolving]
  - Diarrhoea [Recovering/Resolving]
  - Blood alkaline phosphatase increased [Recovering/Resolving]
  - Skin disorder [Recovering/Resolving]
  - Diarrhoea [Recovered/Resolved]

NARRATIVE: CASE EVENT DATE: 20130218
